FAERS Safety Report 7436793-9 (Version None)
Quarter: 2011Q2

REPORT INFORMATION
  Report Type: 
  Country: None (occurrence: None)
  Receive Date: 20110426
  Receipt Date: 20110421
  Transmission Date: 20111010
  Serious: No
  Sender: FDA-Public Use
  Company Number: US-PFIZER INC-2011087933

PATIENT
  Sex: Male

DRUGS (3)
  1. METOPROLOL [Concomitant]
  2. TIKOSYN [Suspect]
     Dosage: 250 UG, 2X/DAY
  3. LISINOPRIL [Concomitant]

REACTIONS (1)
  - INFECTION [None]
